FAERS Safety Report 8966818 (Version 1)
Quarter: 2012Q4

REPORT INFORMATION
  Report Type: 
  Country: US (occurrence: US)
  Receive Date: 20121214
  Receipt Date: 20121214
  Transmission Date: 20130627
  Serious: Yes (Other)
  Sender: FDA-Public Use
  Company Number: US-BAXTER-2012BAX027348

PATIENT
  Age: 59 Year
  Sex: Female

DRUGS (2)
  1. GENTAMICIN SULFATE [Suspect]
     Indication: CATHETER INFECTION
     Route: 042
  2. VANCOMYCIN [Concomitant]
     Indication: CATHETER INFECTION
     Route: 042

REACTIONS (1)
  - Myoclonus [Recovered/Resolved]
